FAERS Safety Report 9307798 (Version 2)
Quarter: 2013Q3

REPORT INFORMATION
  Report Type: Spontaneous
  Country: FR (occurrence: FR)
  Receive Date: 20130524
  Receipt Date: 20130712
  Transmission Date: 20140515
  Serious: Yes (Other)
  Sender: FDA-Public Use
  Company Number: FR-PFIZER INC-2013156777

PATIENT
  Age: 3 Year
  Sex: Female

DRUGS (2)
  1. ADVIL ENFANTS ET NOURRISSONS [Suspect]
     Indication: PYREXIA
     Dosage: 1 DF, 3X/DAY
     Dates: start: 20130423
  2. ASPIRINE [Concomitant]
     Indication: PYREXIA
     Dosage: UNK
     Dates: start: 20130423

REACTIONS (1)
  - Toxic skin eruption [Unknown]
